FAERS Safety Report 14983751 (Version 1)
Quarter: 2018Q2

REPORT INFORMATION
  Report Type: Spontaneous
  Country: US (occurrence: US)
  Receive Date: 20180607
  Receipt Date: 20180607
  Transmission Date: 20180711
  Serious: No
  Sender: FDA-Public Use
  Company Number: US-TEVA-822692ACC

PATIENT

DRUGS (2)
  1. CLOPIDOGREL [Suspect]
     Active Substance: CLOPIDOGREL BISULFATE
     Dosage: PACKAGED: BLISTER PACK 15
     Route: 065
  2. PRASUGREL. [Suspect]
     Active Substance: PRASUGREL
     Route: 065

REACTIONS (2)
  - Urticaria [Unknown]
  - Product substitution issue [Unknown]
